FAERS Safety Report 9109696 (Version 1)
Quarter: 2013Q1

REPORT INFORMATION
  Report Type: Spontaneous
  Country: FR (occurrence: FR)
  Receive Date: 20130222
  Receipt Date: 20130222
  Transmission Date: 20140127
  Serious: Yes (Hospitalization)
  Sender: FDA-Public Use
  Company Number: FR-PFIZER INC-2013059669

PATIENT
  Age: 51 Year
  Sex: Male

DRUGS (12)
  1. TORISEL [Suspect]
     Dosage: 25 MG, WEEKLY
     Route: 042
     Dates: start: 20120312
  2. GLUCOR [Concomitant]
     Dosage: UNK
  3. LYRICA [Concomitant]
     Dosage: UNK
  4. LASILIX [Concomitant]
     Dosage: UNK
  5. CARDENSIEL [Concomitant]
     Dosage: UNK
  6. ALDACTAZINE [Concomitant]
     Dosage: UNK
  7. RAMIPRIL [Concomitant]
     Dosage: UNK
  8. TAHOR [Concomitant]
     Dosage: UNK
  9. KARDEGIC [Concomitant]
     Dosage: UNK
  10. AMAREL [Concomitant]
     Dosage: UNK
  11. XATRAL [Concomitant]
     Dosage: UNK
  12. GLUCOPHAGE [Concomitant]
     Dosage: UNK

REACTIONS (7)
  - Cardiac failure acute [Unknown]
  - Anaemia [Unknown]
  - Diarrhoea [Unknown]
  - Dyspnoea [Unknown]
  - Weight increased [Unknown]
  - Brain natriuretic peptide increased [Unknown]
  - Haemoglobin increased [Unknown]
